FAERS Safety Report 17530702 (Version 1)
Quarter: 2020Q1

REPORT INFORMATION
  Report Type: Spontaneous
  Country: NL (occurrence: NL)
  Receive Date: 20200312
  Receipt Date: 20200312
  Transmission Date: 20200409
  Serious: Yes (Hospitalization)
  Sender: FDA-Public Use
  Company Number: NL-TEVA-2020-NL-1198206

PATIENT
  Sex: Female
  Weight: 59.2 kg

DRUGS (6)
  1. SALBUTAMOL/IPRATROPIUM [Concomitant]
     Active Substance: ALBUTEROL\IPRATROPIUM
     Dosage: NEBULIZING FLUID, 1.25 / 0.125 MG / ML (MILLIGRAMS PER MILLILITER)
  2. VALPORINEZUUR (VALPROIC ACID) [Suspect]
     Active Substance: VALPROIC ACID
     Indication: EPILEPSY
     Dosage: 300 MG ORALLY, 2 TIMES A DAY, 3 TABLET
     Route: 048
     Dates: start: 2020
  3. LANTUS [Concomitant]
     Active Substance: INSULIN GLARGINE
     Dosage: INJECTION LIQUID, 100 UNITS / ML (UNITS PER MILLILITER)
  4. OXYCODON [Concomitant]
     Active Substance: OXYCODONE
     Dosage: TABLET, 10 MG (MILLIGRAM)
  5. OXAZEPAM. [Concomitant]
     Active Substance: OXAZEPAM
     Dosage: TABLET
  6. AMOXICILLINE/CLAVULAANZUUR [Concomitant]
     Active Substance: AMOXICILLIN\CLAVULANATE POTASSIUM
     Dosage: POWDER INJECTION LIQUID, 1000/200 MG (MILLIGRAMS)

REACTIONS (5)
  - Disturbance in attention [Not Recovered/Not Resolved]
  - Musculoskeletal stiffness [Not Recovered/Not Resolved]
  - Depressed level of consciousness [Not Recovered/Not Resolved]
  - Somnolence [Not Recovered/Not Resolved]
  - Lethargy [Not Recovered/Not Resolved]
